FAERS Safety Report 11994929 (Version 1)
Quarter: 2016Q1

REPORT INFORMATION
  Report Type: Spontaneous
  Country: US (occurrence: US)
  Receive Date: 20160203
  Receipt Date: 20160203
  Transmission Date: 20160526
  Serious: No
  Sender: FDA-Public Use
  Company Number: US-009507513-1601USA007120

PATIENT
  Age: 19 Year
  Sex: Female
  Weight: 61.68 kg

DRUGS (1)
  1. NEXPLANON [Suspect]
     Active Substance: ETONOGESTREL
     Indication: CONTRACEPTION
     Dosage: UNK
     Route: 059
     Dates: start: 20150529, end: 20160115

REACTIONS (6)
  - Implant site erythema [Recovering/Resolving]
  - Implant site bruising [Recovering/Resolving]
  - Implant site discharge [Recovering/Resolving]
  - Implant site pain [Recovering/Resolving]
  - Device kink [Recovered/Resolved]
  - Implant site infection [Recovering/Resolving]

NARRATIVE: CASE EVENT DATE: 201601
